FAERS Safety Report 8817082 (Version 1)
Quarter: 2012Q4

REPORT INFORMATION
  Report Type: Spontaneous
  Country: None (occurrence: None)
  Receive Date: 20121002
  Receipt Date: 20121002
  Transmission Date: 20130627
  Serious: Yes (Other)
  Sender: FDA-Public Use
  Company Number: AUR-APL-2012-04089

PATIENT
  Age: 15 Year
  Sex: Female

DRUGS (4)
  1. CETIRIZINE (CETIRIZINE) [Suspect]
     Indication: HAY FEVER
     Route: 048
  2. LAMOTRIGINE [Suspect]
     Indication: BIPOLAR DISORDER
  3. ABILIFY [Suspect]
     Indication: BIPOLAR DISORDER
  4. ETONOGESTREL [Suspect]
     Indication: CONTRACEPTION

REACTIONS (4)
  - Pregnancy with implant contraceptive [None]
  - Abortion spontaneous [None]
  - Drug interaction [None]
  - Maternal exposure during pregnancy [None]
